FAERS Safety Report 6743776-0 (Version None)
Quarter: 2010Q2

REPORT INFORMATION
  Report Type: 
  Country: None (occurrence: None)
  Receive Date: 20100527
  Receipt Date: 20100517
  Transmission Date: 20101027
  Serious: Yes (Other)
  Sender: FDA-Public Use
  Company Number: US-AMGEN-QUU412753

PATIENT
  Sex: Female

DRUGS (1)
  1. SENSIPAR [Suspect]
     Indication: PARATHYROID TUMOUR MALIGNANT
     Route: 048

REACTIONS (5)
  - DIZZINESS [None]
  - DYSPHAGIA [None]
  - HYPERCALCAEMIA [None]
  - MALIGNANT NEOPLASM PROGRESSION [None]
  - VOMITING [None]
